FAERS Safety Report 9750216 (Version 1)
Quarter: 2013Q4

REPORT INFORMATION
  Report Type: Spontaneous
  Country: CH (occurrence: CH)
  Receive Date: 20131212
  Receipt Date: 20131212
  Transmission Date: 20140711
  Serious: Yes (Hospitalization)
  Sender: FDA-Public Use
  Company Number: CH-TEVA-449019ISR

PATIENT
  Age: 52 Year
  Sex: Male

DRUGS (9)
  1. SOTALOL-MEPHA 80 TABLETTEN [Suspect]
     Indication: ARRHYTHMIA
     Dosage: 160 MILLIGRAM DAILY; START OF THERAPY UNKNOWN, GAP IN DOCUMENTATION BETWEEN 2009 AND MAR-2013
     Route: 048
     Dates: start: 2012, end: 20131026
  2. TOREM 10 TABLETTEN [Interacting]
     Indication: MYOCARDIAL ISCHAEMIA
     Dosage: 10 MILLIGRAM DAILY;
     Route: 048
     Dates: start: 2009
  3. HYGROTON 25 MG TABLETTEN [Interacting]
     Indication: CORONARY ARTERY DISEASE
     Dosage: 50 MILLIGRAM DAILY; START OF THERAPY UNKNOWN, GAP IN DOCUMENTATION BETWEEN 2009 AND MAR-2013
     Route: 048
     Dates: start: 2012, end: 20131026
  4. ALDACTONE 25 MG [Concomitant]
     Indication: PRODUCT USED FOR UNKNOWN INDICATION
     Dosage: 75 MILLIGRAM DAILY; CONTINUING
     Route: 065
  5. KCL HAUSMANN [Concomitant]
     Indication: PRODUCT USED FOR UNKNOWN INDICATION
     Dosage: 6 DOSAGE FORMS DAILY; CONTINUING
     Route: 048
  6. ASPIRIN CARDIO [Concomitant]
     Indication: PRODUCT USED FOR UNKNOWN INDICATION
     Dosage: 1 DOSAGE FORMS DAILY; CONTINUING
     Route: 048
  7. MG 5 [Concomitant]
     Indication: PRODUCT USED FOR UNKNOWN INDICATION
     Dosage: 1 DOSAGE FORMS DAILY; CONTINUING
     Route: 065
  8. ALLOPURINOL [Concomitant]
     Indication: PRODUCT USED FOR UNKNOWN INDICATION
     Dosage: 300 MILLIGRAM DAILY; CONTINUING
     Route: 065
  9. MARCOUMAR [Concomitant]
     Indication: PRODUCT USED FOR UNKNOWN INDICATION
     Dosage: 3 MILLIGRAM DAILY; CONTINUING, ACCORDING TO INR
     Route: 065

REACTIONS (3)
  - Ventricular tachycardia [Recovered/Resolved]
  - Hypokalaemia [Recovered/Resolved]
  - Drug interaction [Recovered/Resolved]
